FAERS Safety Report 22090690 (Version 2)
Quarter: 2024Q2

REPORT INFORMATION
  Report Type: Report from Study
  Country: US (occurrence: US)
  Receive Date: 20230313
  Receipt Date: 20240402
  Transmission Date: 20240716
  Serious: No
  Sender: FDA-Public Use
  Company Number: US-INCYTE CORPORATION-2023IN001890

PATIENT

DRUGS (3)
  1. JAKAFI [Suspect]
     Active Substance: RUXOLITINIB
     Dosage: 20 MILLIGRAM, BID
     Route: 065
  2. JAKAFI [Suspect]
     Active Substance: RUXOLITINIB
     Dosage: LOWERING THE DOSE AND TAKING QUARTER OF DOSAGE
     Route: 065
  3. JAKAFI [Suspect]
     Active Substance: RUXOLITINIB
     Dosage: UNK, BID
     Route: 065

REACTIONS (5)
  - Pruritus [Unknown]
  - Intentional product use issue [Unknown]
  - Cytokine increased [Unknown]
  - Frustration tolerance decreased [Unknown]
  - Product availability issue [Unknown]
